FAERS Safety Report 5566500-6 (Version None)
Quarter: 2007Q4

REPORT INFORMATION
  Report Type: 
  Country: None (occurrence: None)
  Receive Date: 20071219
  Receipt Date: 20071211
  Transmission Date: 20080405
  Serious: Yes (Other)
  Sender: FDA-Public Use
  Company Number: GB-JNJFOC-20071203601

PATIENT
  Sex: Female
  Weight: 60 kg

DRUGS (13)
  1. REMICADE [Suspect]
     Indication: RHEUMATOID ARTHRITIS
     Route: 042
  2. MELOXICAM [Concomitant]
  3. OXYBUTYMIN [Concomitant]
  4. METHOTREXATE [Concomitant]
  5. PREDNISONE [Concomitant]
  6. ASCORBIC ACID [Concomitant]
  7. FERROUS SULFATE TAB [Concomitant]
  8. FOLIC ACID [Concomitant]
  9. LOPERAMIDE HCL [Concomitant]
  10. VITAMIN CAP [Concomitant]
  11. PANTOPRAZOLE SODIUM [Concomitant]
  12. QUININE SULFATE [Concomitant]
  13. VALSARTAN [Concomitant]

REACTIONS (1)
  - SKIN CANCER [None]
